FAERS Safety Report 7218376-9 (Version None)
Quarter: 2011Q1

REPORT INFORMATION
  Report Type: 
  Country: None (occurrence: None)
  Receive Date: 20110110
  Receipt Date: 20101231
  Transmission Date: 20110831
  Serious: Yes (Hospitalization)
  Sender: FDA-Public Use
  Company Number: CH-PFIZER INC-CH-WYE-H14205210

PATIENT
  Age: 74 Year
  Sex: Female

DRUGS (12)
  1. TEMESTA [Suspect]
     Dosage: 1 MG, 1X/DAY
     Route: 065
  2. KALIUM [Suspect]
  3. CIPROXIN [Suspect]
     Dosage: 250 MG, 2X/DAY
  4. DIPYRONE INJ [Suspect]
  5. DETRUSITOL SR [Suspect]
     Dosage: 4 MG, 1X/DAY
     Route: 065
  6. PLENDIL [Concomitant]
     Dosage: 5 MG, 1X/DAY
     Route: 065
  7. PANTOZOL [Suspect]
     Dosage: 40 MG, 1X/DAY
  8. DAFALGAN [Suspect]
     Dosage: 1000 MG, 3X/DAY
  9. ELTROXIN [Concomitant]
     Dosage: 0.1 MG, 1X/DAY
     Route: 065
  10. NOVABAN [Suspect]
  11. PASPERTIN [Suspect]
     Dosage: 20 GTT, 3X/DAY
  12. BUSCOPAN [Suspect]

REACTIONS (3)
  - HAEMATURIA [None]
  - BLADDER TAMPONADE [None]
  - PLATELET DISORDER [None]
